FAERS Safety Report 14367623 (Version 1)
Quarter: 2018Q1

REPORT INFORMATION
  Report Type: Spontaneous
  Country: US (occurrence: US)
  Receive Date: 20180105
  Receipt Date: 20180105
  Transmission Date: 20180509
  Serious: Yes (Other)
  Sender: FDA-Public Use
  Company Number: None

PATIENT
  Age: 81 Year
  Sex: Male
  Weight: 61 kg

DRUGS (2)
  1. PEMBROLIZUMAB. [Suspect]
     Active Substance: PEMBROLIZUMAB
  2. AZACITIDINE. [Suspect]
     Active Substance: AZACITIDINE

REACTIONS (8)
  - Pneumonia fungal [None]
  - Cough [None]
  - Pyrexia [None]
  - Feeling abnormal [None]
  - Pulmonary mass [None]
  - Pneumonia [None]
  - Chest pain [None]
  - Back pain [None]

NARRATIVE: CASE EVENT DATE: 20180105
